FAERS Safety Report 6169139-7 (Version None)
Quarter: 2009Q2

REPORT INFORMATION
  Report Type: 
  Country: None (occurrence: None)
  Receive Date: 20090427
  Receipt Date: 20090413
  Transmission Date: 20091009
  Serious: Yes (Hospitalization, Other)
  Sender: FDA-Public Use
  Company Number: US-ELI_LILLY_AND_COMPANY-US200904002913

PATIENT
  Sex: Female

DRUGS (1)
  1. ZYPREXA [Suspect]
     Indication: AGGRESSION
     Dosage: UNK, UNK
     Dates: start: 19990501, end: 20060101

REACTIONS (15)
  - AGGRESSION [None]
  - AMENORRHOEA [None]
  - ARRHYTHMIA [None]
  - DIABETES MELLITUS [None]
  - DYSPNOEA [None]
  - EXERCISE TOLERANCE DECREASED [None]
  - IMPRISONMENT [None]
  - PAIN [None]
  - PALPITATIONS [None]
  - PEAU D'ORANGE [None]
  - POOR DENTAL CONDITION [None]
  - POOR PERSONAL HYGIENE [None]
  - SUICIDE ATTEMPT [None]
  - SYNCOPE [None]
  - WEIGHT INCREASED [None]
